FAERS Safety Report 17984236 (Version 2)
Quarter: 2020Q3

REPORT INFORMATION
  Report Type: Spontaneous
  Country: ES (occurrence: ES)
  Receive Date: 20200706
  Receipt Date: 20200713
  Transmission Date: 20201103
  Serious: Yes (Other)
  Sender: FDA-Public Use
  Company Number: NVSC2020ES189454

PATIENT
  Age: 58 Year
  Sex: Female

DRUGS (2)
  1. TRAMETINIB [Suspect]
     Active Substance: TRAMETINIB
     Indication: METASTATIC MALIGNANT MELANOMA
     Dosage: 2 MG, Q12H
     Route: 065
  2. DABRAFENIB [Suspect]
     Active Substance: DABRAFENIB
     Indication: METASTATIC MALIGNANT MELANOMA
     Dosage: 150 MG, Q12H
     Route: 065

REACTIONS (7)
  - Vogt-Koyanagi-Harada disease [Unknown]
  - Vitritis [Unknown]
  - Iridocyclitis [Unknown]
  - Serous retinal detachment [Unknown]
  - Uveitis [Unknown]
  - Vasculitis [Unknown]
  - Eye oedema [Unknown]
